FAERS Safety Report 8697031 (Version 2)
Quarter: 2013Q4

REPORT INFORMATION
  Report Type: Spontaneous
  Country: FR (occurrence: FR)
  Receive Date: 20120801
  Receipt Date: 20131022
  Transmission Date: 20140711
  Serious: Yes (Hospitalization)
  Sender: FDA-Public Use
  Company Number: FR-ASTRAZENECA-2012SE52115

PATIENT
  Age: 57 Year
  Sex: Male

DRUGS (12)
  1. INEXIUM [Suspect]
     Route: 048
  2. CYMEVAN [Suspect]
     Indication: PNEUMONIA CYTOMEGALOVIRAL
     Dates: start: 20120320, end: 20120419
  3. OFLOCET [Suspect]
     Indication: ENDOCARDITIS
     Route: 048
     Dates: start: 201201
  4. HYPNOVEL [Concomitant]
  5. SUFENTANYL [Concomitant]
  6. CLAFORAN [Concomitant]
  7. FOSFOMYCINE [Concomitant]
  8. TRIFLUCAN [Concomitant]
  9. FLAGYL [Concomitant]
  10. NORADRENALINE [Concomitant]
  11. ADRENALINE [Concomitant]
  12. DOBUTAMINE BASE [Concomitant]

REACTIONS (1)
  - Bicytopenia [Recovered/Resolved]
